FAERS Safety Report 9699066 (Version 2)
Quarter: 2013Q4

REPORT INFORMATION
  Report Type: Report from Study
  Country: GB (occurrence: GB)
  Receive Date: 20131120
  Receipt Date: 20131126
  Transmission Date: 20140711
  Serious: Yes (Hospitalization)
  Sender: FDA-Public Use
  Company Number: GB-EXELIXIS-XL18413003657

PATIENT
  Age: 62 Year
  Sex: Male

DRUGS (9)
  1. XL184 [Suspect]
     Indication: PROSTATE CANCER
     Dosage: 60 MG, QD
     Route: 048
     Dates: start: 20130912
  2. XL184 [Suspect]
     Indication: PROSTATE CANCER
     Dosage: 5 MG, BID
     Route: 048
     Dates: start: 20130912
  3. METFORMIN [Concomitant]
  4. THYROXINE [Concomitant]
  5. NAPROXEN [Concomitant]
  6. LANSOPRAZOLE [Concomitant]
  7. CODEINE PHOSPHATE [Concomitant]
  8. ZOMETA [Concomitant]
  9. ZOLADEX [Concomitant]

REACTIONS (1)
  - Viral pharyngitis [Recovered/Resolved with Sequelae]
